FAERS Safety Report 13337595 (Version 2)
Quarter: 2017Q1

REPORT INFORMATION
  Report Type: Report from Study
  Country: MX (occurrence: MX)
  Receive Date: 20170315
  Receipt Date: 20170329
  Transmission Date: 20170428
  Serious: Yes (Other)
  Sender: FDA-Public Use
  Company Number: PHHY2017MX038740

PATIENT
  Sex: Male
  Weight: 73.5 kg

DRUGS (2)
  1. GALVUS MET [Suspect]
     Active Substance: METFORMIN HYDROCHLORIDE\VILDAGLIPTIN
     Indication: DIABETES MELLITUS
     Dosage: 2 DF (METFORMIN 1000 MG, VILDAGLIPTIN 50 MG), QD (1 IN THE MORNING AND 1 AT NIGHT)
     Route: 048
     Dates: start: 2007
  2. CO-DIOVAN [Suspect]
     Active Substance: HYDROCHLOROTHIAZIDE\VALSARTAN
     Indication: HYPERTENSION
     Dosage: 1 DF, (HYDROCHLOROTHIAZIDE 12.5 MG, VALSARTAN 160 MG), QD (IN THE MORNING)
     Route: 048
     Dates: start: 2007

REACTIONS (2)
  - Renal cancer [Not Recovered/Not Resolved]
  - Glaucoma [Not Recovered/Not Resolved]

NARRATIVE: CASE EVENT DATE: 2015
